FAERS Safety Report 10065195 (Version 1)
Quarter: 2014Q1

REPORT INFORMATION
  Report Type: Spontaneous
  Country: US (occurrence: None)
  Receive Date: 20140328
  Receipt Date: 20140328
  Transmission Date: 20141002
  Serious: No
  Sender: FDA-Public Use
  Company Number: CABO-14003981

PATIENT
  Age: 65 Year
  Sex: Male

DRUGS (9)
  1. COMETRIQ (CABOZANTINIB) CAPSULE [Suspect]
     Indication: RENAL CANCER
     Route: 048
     Dates: start: 20140103, end: 20140131
  2. COMETRIQ (CABOZANTINIB) CAPSULE [Suspect]
     Indication: RENAL CANCER
     Route: 048
     Dates: start: 20140103, end: 20140131
  3. AMLODIPINE (AMLODIPINE) [Concomitant]
  4. FOLIC ACID (FOLIC ACID) [Concomitant]
  5. PRILOSEC (OMEPRAZOLE) [Concomitant]
  6. SPIRIVA (TIOTROPIUM BROMIDE) [Concomitant]
  7. TYLENOL (PARACETAMOL) [Concomitant]
  8. VITAMINS NOS (VITAMINS NOS) [Concomitant]
  9. WELLBUTRIN (BUPROPION HYDROCHLORIDE) [Concomitant]

REACTIONS (4)
  - Hypersomnia [None]
  - Rash [None]
  - Decreased appetite [None]
  - Off label use [None]
